FAERS Safety Report 5885291-2 (Version None)
Quarter: 2008Q3

REPORT INFORMATION
  Report Type: 
  Country: None (occurrence: None)
  Receive Date: 20080915
  Receipt Date: 20080915
  Transmission Date: 20090109
  Serious: Yes (Life-Threatening)
  Sender: FDA-Public Use
  Company Number: None

PATIENT
  Sex: Female
  Weight: 68.0396 kg

DRUGS (1)
  1. LIPITOR [Suspect]
     Indication: BLOOD CHOLESTEROL
     Dosage: 50M ONCE DAILY PO
     Route: 048

REACTIONS (4)
  - ASTHENIA [None]
  - DRUG DOSE OMISSION [None]
  - HYPOTONIA [None]
  - PAIN [None]
